FAERS Safety Report 21076152 (Version 1)
Quarter: 2022Q3

REPORT INFORMATION
  Report Type: Spontaneous
  Country: CN (occurrence: CN)
  Receive Date: 20220713
  Receipt Date: 20220713
  Transmission Date: 20221026
  Serious: Yes (Hospitalization)
  Sender: FDA-Public Use
  Company Number: CN-PFIZER INC-PV202200020468

PATIENT
  Age: 10 Year
  Sex: Female
  Weight: 31.5 kg

DRUGS (2)
  1. METHOTREXATE SODIUM [Suspect]
     Active Substance: METHOTREXATE SODIUM
     Indication: Leukaemia
     Dosage: 5 G, 1X/DAY
     Route: 041
     Dates: start: 20220601, end: 20220602
  2. METHOTREXATE SODIUM [Suspect]
     Active Substance: METHOTREXATE SODIUM
     Indication: Chemotherapy

REACTIONS (2)
  - Acute kidney injury [Recovering/Resolving]
  - Metabolic disorder [Recovering/Resolving]

NARRATIVE: CASE EVENT DATE: 20220603
